FAERS Safety Report 5763983-3 (Version None)
Quarter: 2008Q2

REPORT INFORMATION
  Report Type: 
  Country: None (occurrence: None)
  Receive Date: 20080606
  Receipt Date: 20080606
  Transmission Date: 20081010
  Serious: Yes (Life-Threatening, Hospitalization, Disabling)
  Sender: FDA-Public Use
  Company Number: None

PATIENT
  Sex: Female
  Weight: 65.318 kg

DRUGS (1)
  1. COREG [Suspect]
     Dosage: 2 TABLETS TWICE DAILY ORAL
     Route: 048
     Dates: start: 20080201, end: 20080401

REACTIONS (9)
  - ANXIETY [None]
  - BLOOD PRESSURE ABNORMAL [None]
  - CONTUSION [None]
  - GLAUCOMA [None]
  - INSOMNIA [None]
  - MYOCARDIAL INFARCTION [None]
  - PLEURAL EFFUSION [None]
  - URINARY RETENTION [None]
  - VISUAL ACUITY REDUCED [None]
